FAERS Safety Report 5194525-1 (Version None)
Quarter: 2006Q4

REPORT INFORMATION
  Report Type: 
  Country: None (occurrence: None)
  Receive Date: 20061222
  Receipt Date: 20061220
  Transmission Date: 20070319
  Serious: Yes (Other)
  Sender: FDA-Public Use
  Company Number: 2006S1000257

PATIENT
  Age: 1 Month
  Sex: Female

DRUGS (8)
  1. NITRIC OXIDE [Suspect]
     Indication: LUNG DISORDER
     Dosage: 5 PPM; INH_GAS; INH; CONT INH
     Route: 055
     Dates: start: 20060712, end: 20060722
  2. NITRIC OXIDE [Suspect]
     Indication: PROPHYLAXIS
     Dosage: 5 PPM; INH_GAS; INH; CONT INH
     Route: 055
     Dates: start: 20060712, end: 20060722
  3. FUROSEMIDE [Concomitant]
  4. FENTANYL [Concomitant]
  5. MIDAZOLAM HCL [Concomitant]
  6. IMIPENEM (IMIPENEM) [Concomitant]
  7. RED BLOOD CELLS [Concomitant]
  8. PLATELETS [Concomitant]

REACTIONS (5)
  - ANAEMIA NEONATAL [None]
  - HYPERGLYCAEMIA [None]
  - INTRAVENTRICULAR HAEMORRHAGE NEONATAL [None]
  - NEONATAL DISORDER [None]
  - PATENT DUCTUS ARTERIOSUS [None]
